FAERS Safety Report 4715949-X (Version None)
Quarter: 2005Q3

REPORT INFORMATION
  Report Type: 
  Country: None (occurrence: None)
  Receive Date: 20050718
  Receipt Date: 20050311
  Transmission Date: 20060218
  Serious: Yes (Hospitalization)
  Sender: FDA-Public Use
  Company Number: US-MERCK-0503USA02669

PATIENT
  Age: 53 Year
  Sex: Male
  Weight: 100 kg

DRUGS (8)
  1. VIOXX [Suspect]
     Indication: ARTHRITIS
     Route: 048
     Dates: start: 19990101, end: 20040901
  2. VIOXX [Suspect]
     Route: 065
     Dates: start: 20031121
  3. VIOXX [Suspect]
     Route: 065
     Dates: start: 20040129
  4. VIOXX [Suspect]
     Route: 048
     Dates: start: 19990917
  5. VIOXX [Suspect]
     Route: 048
     Dates: start: 19991015
  6. ATENOLOL [Concomitant]
     Indication: BLOOD PRESSURE
     Route: 065
     Dates: end: 20040801
  7. LORCET-HD [Concomitant]
     Indication: PAIN
     Route: 065
  8. CELEBREX [Concomitant]
     Route: 065
     Dates: start: 19990101, end: 19990901

REACTIONS (14)
  - ACROCHORDON [None]
  - ACUTE MYOCARDIAL INFARCTION [None]
  - CARDIAC FAILURE CONGESTIVE [None]
  - CONTUSION [None]
  - CORONARY ARTERY DISEASE [None]
  - DRUG ADMINISTRATION ERROR [None]
  - EPISTAXIS [None]
  - FALL [None]
  - HYPERCHOLESTEROLAEMIA [None]
  - NEPHROLITHIASIS [None]
  - NON-CARDIAC CHEST PAIN [None]
  - OSTEOARTHRITIS [None]
  - VOMITING [None]
  - WOUND INFECTION [None]
